FAERS Safety Report 8959382 (Version 1)
Quarter: 2012Q4

REPORT INFORMATION
  Report Type: 
  Country: US (occurrence: US)
  Receive Date: 20121211
  Receipt Date: 20121211
  Transmission Date: 20130627
  Serious: No
  Sender: FDA-Public Use
  Company Number: US-ASTRAZENECA-2012SE87381

PATIENT

DRUGS (1)
  1. METOPROLOL SUCCINATE [Suspect]
     Dosage: GENERIC
     Route: 048

REACTIONS (2)
  - Abnormal dreams [Unknown]
  - Drug ineffective [Unknown]
